FAERS Safety Report 5859485-6 (Version None)
Quarter: 2008Q3

REPORT INFORMATION
  Report Type: 
  Country: None (occurrence: None)
  Receive Date: 20080827
  Receipt Date: 20080821
  Transmission Date: 20090109
  Serious: Yes (Hospitalization)
  Sender: FDA-Public Use
  Company Number: A0718384A

PATIENT
  Age: 79 Year
  Sex: Female

DRUGS (6)
  1. AVANDIA [Suspect]
     Dosage: 4MG PER DAY
     Route: 048
     Dates: start: 20051004, end: 20061001
  2. GLUCOTROL [Concomitant]
     Dates: start: 20010101, end: 20061001
  3. GLUCOSAMINE [Concomitant]
  4. GABAPENTIN [Concomitant]
  5. LEVOXYL [Concomitant]
  6. AMBIEN [Concomitant]

REACTIONS (2)
  - INJURY [None]
  - MYOCARDIAL INFARCTION [None]
